FAERS Safety Report 8448451-2 (Version None)
Quarter: 2012Q2

REPORT INFORMATION
  Report Type: 
  Country: None (occurrence: None)
  Receive Date: 20120619
  Receipt Date: 20120604
  Transmission Date: 20120825
  Serious: Yes (Death, Other)
  Sender: FDA-Public Use
  Company Number: US-ROCHE-1077358

PATIENT

DRUGS (2)
  1. TEMOZOLOMIDE [Suspect]
     Indication: GLIOBLASTOMA
     Route: 042
  2. AVASTIN [Suspect]
     Indication: GLIOBLASTOMA
     Route: 042

REACTIONS (11)
  - HYPERTENSION [None]
  - DEHYDRATION [None]
  - THROMBOCYTOPENIA [None]
  - PNEUMONIA FUNGAL [None]
  - PANCREATITIS [None]
  - COLITIS [None]
  - HAEMORRHOIDS [None]
  - HYPERGLYCAEMIA [None]
  - DIARRHOEA [None]
  - FATIGUE [None]
  - DYSPNOEA [None]
